FAERS Safety Report 23298012 (Version 1)
Quarter: 2023Q4

REPORT INFORMATION
  Report Type: Spontaneous
  Country: US (occurrence: None)
  Receive Date: 20231214
  Receipt Date: 20231214
  Transmission Date: 20240109
  Serious: Yes (Disabling)
  Sender: FDA-Public Use
  Company Number: None

PATIENT
  Age: 73 Year
  Sex: Female
  Weight: 59.87 kg

DRUGS (17)
  1. PROLIA [Suspect]
     Active Substance: DENOSUMAB
     Indication: Osteoporosis
     Dosage: FREQUENCY : ONCE;?
     Route: 058
     Dates: start: 20230601, end: 20230601
  2. BYSTOLIC [Concomitant]
     Active Substance: NEBIVOLOL HYDROCHLORIDE
  3. AMLODIPINE [Concomitant]
     Active Substance: AMLODIPINE BESYLATE
  4. HYDROCHLOROTHIAZIDE [Concomitant]
     Active Substance: HYDROCHLOROTHIAZIDE
  5. ROSUVASTATIN [Concomitant]
     Active Substance: ROSUVASTATIN
  6. CLARITIN [Concomitant]
     Active Substance: LORATADINE
  7. BUDESONIDE [Concomitant]
     Active Substance: BUDESONIDE
  8. UNSPECIFIED INGREDIENT [Concomitant]
     Active Substance: UNSPECIFIED INGREDIENT
  9. FAMOTIDINE [Concomitant]
     Active Substance: FAMOTIDINE
  10. MUCINEX [Concomitant]
     Active Substance: GUAIFENESIN
  11. ESTRING [Concomitant]
     Active Substance: ESTRADIOL
  12. ALBUTEROL [Concomitant]
     Active Substance: ALBUTEROL
  13. Advair generic [Concomitant]
  14. LEVOTHYROXINE [Concomitant]
     Active Substance: LEVOTHYROXINE
  15. Liquid Calcium/magnesium citrate [Concomitant]
  16. Vit D/K2 drops [Concomitant]
  17. Coenzyme Q 10 gummies [Concomitant]

REACTIONS (11)
  - Chest pain [None]
  - Myalgia [None]
  - Skin mass [None]
  - Paraesthesia [None]
  - Arthralgia [None]
  - Joint stiffness [None]
  - Pain in extremity [None]
  - Mobility decreased [None]
  - Discomfort [None]
  - Back pain [None]
  - Muscle tightness [None]

NARRATIVE: CASE EVENT DATE: 20230612
